FAERS Safety Report 9164721 (Version 1)
Quarter: 2013Q1

REPORT INFORMATION
  Report Type: Spontaneous
  Country: SZ (occurrence: None)
  Receive Date: 20130226
  Receipt Date: 20130226
  Transmission Date: 20140127
  Serious: Yes (Other)
  Sender: FDA-Public Use
  Company Number: 2013-03178

PATIENT
  Sex: Male

DRUGS (1)
  1. TRAMADOL HYDROCHLORIDE (UNKNOWN) (TRAMADOL HYDROCHLORIDE) [Suspect]
     Indication: DRUG ABUSE

REACTIONS (3)
  - Drug abuse [None]
  - Legal problem [None]
  - Drug dependence [None]
